FAERS Safety Report 8113752-4 (Version None)
Quarter: 2012Q1

REPORT INFORMATION
  Report Type: 
  Country: None (occurrence: None)
  Receive Date: 20120203
  Receipt Date: 20120126
  Transmission Date: 20120608
  Serious: No
  Sender: FDA-Public Use
  Company Number: US-JNJFOC-20120112495

PATIENT
  Sex: Female

DRUGS (1)
  1. FENTANYL-100 [Suspect]
     Indication: PRODUCT USED FOR UNKNOWN INDICATION
     Route: 062
     Dates: start: 20111230

REACTIONS (5)
  - APPLICATION SITE PRURITUS [None]
  - APPLICATION SITE ERYTHEMA [None]
  - DRUG ADMINISTERED AT INAPPROPRIATE SITE [None]
  - INAPPROPRIATE SCHEDULE OF DRUG ADMINISTRATION [None]
  - WRONG TECHNIQUE IN DRUG USAGE PROCESS [None]
